FAERS Safety Report 13548868 (Version 2)
Quarter: 2017Q2

REPORT INFORMATION
  Report Type: Spontaneous
  Country: US (occurrence: US)
  Receive Date: 20170516
  Receipt Date: 20170614
  Transmission Date: 20170830
  Serious: No
  Sender: FDA-Public Use
  Company Number: US-BRISTOL-MYERS SQUIBB COMPANY-BMS-2017-042513

PATIENT
  Sex: Female

DRUGS (1)
  1. SPRYCEL [Suspect]
     Active Substance: DASATINIB
     Indication: PRODUCT USED FOR UNKNOWN INDICATION
     Dosage: 50 MG, QD
     Route: 048

REACTIONS (7)
  - Weight decreased [Unknown]
  - Prescribed underdose [Unknown]
  - Dry skin [Unknown]
  - Visual impairment [Unknown]
  - Chest pain [Unknown]
  - Epigastric discomfort [Unknown]
  - Nausea [Unknown]
